FAERS Safety Report 10038665 (Version 2)
Quarter: 2014Q1

REPORT INFORMATION
  Report Type: Report from Study
  Country: ES (occurrence: ES)
  Receive Date: 20140326
  Receipt Date: 20140326
  Transmission Date: 20141002
  Serious: Yes (Hospitalization)
  Sender: FDA-Public Use
  Company Number: ES-BAYER-2014-038917

PATIENT
  Age: 74 Year
  Sex: Female
  Weight: 72 kg

DRUGS (7)
  1. REGORAFENIB [Suspect]
     Indication: COLORECTAL CANCER METASTATIC
     Dosage: 160 MG, QD
     Route: 048
     Dates: start: 20140221, end: 20140307
  2. DOXAZOSIN [Concomitant]
     Indication: HYPERTENSION
     Dosage: UNK
     Route: 048
  3. GLUCOBAY 100 [Concomitant]
     Dosage: UNK
     Route: 048
  4. GLIMEPIRIDE [Concomitant]
     Indication: DIABETES MELLITUS
     Dosage: UNK
     Route: 048
  5. OMEPRAZOL [Concomitant]
     Indication: PROPHYLAXIS
     Dosage: UNK
     Route: 048
  6. NEBIVOLOL [Concomitant]
     Indication: HYPERTENSION
     Dosage: UNK
     Route: 048
  7. PREVENCOR [Concomitant]
     Indication: DYSLIPIDAEMIA
     Dosage: UNK
     Route: 048

REACTIONS (1)
  - Renal failure [Recovered/Resolved]
